FAERS Safety Report 8623143-5 (Version None)
Quarter: 2012Q3

REPORT INFORMATION
  Report Type: 
  Country: None (occurrence: None)
  Receive Date: 20120827
  Receipt Date: 20120814
  Transmission Date: 20120928
  Serious: Yes (Other)
  Sender: FDA-Public Use
  Company Number: JP-VERTEX PHARMACEUTICAL INC.-AE-2012-004897

PATIENT
  Age: 61 Year
  Sex: Male

DRUGS (15)
  1. VX-950 [Suspect]
     Dosage: 1500 MG, QD
     Route: 048
     Dates: start: 20120220, end: 20120223
  2. PEGINTERFERON ALFA-2B [Concomitant]
     Dosage: 1.5 A?G/KG, UNK
     Route: 058
     Dates: start: 20120210
  3. RIBAVIRIN [Concomitant]
     Dosage: 300 MG, QD
     Route: 048
     Dates: start: 20120330, end: 20120412
  4. RIBAVIRIN [Concomitant]
     Indication: HEPATITIS C
     Dosage: 800 MG, QD
     Route: 048
     Dates: start: 20120210, end: 20120302
  5. RIBAVIRIN [Concomitant]
     Dosage: 600 MG, QD
     Route: 048
     Dates: end: 20120518
  6. RIBAVIRIN [Concomitant]
     Dosage: 400 MG, QD
     Route: 048
     Dates: start: 20120519
  7. RIBAVIRIN [Concomitant]
     Dosage: 200 MG, QD
     Route: 048
     Dates: start: 20120323, end: 20120330
  8. RIBAVIRIN [Concomitant]
     Dosage: 500 MG, UNK
     Route: 048
     Dates: start: 20120502
  9. RIBAVIRIN [Concomitant]
     Dosage: 400 MG, UNK
     Route: 048
     Dates: start: 20120331
  10. ALLOPURINOL [Concomitant]
     Route: 048
     Dates: start: 20120220
  11. RIBAVIRIN [Concomitant]
     Dosage: 400 MG, UNK
     Route: 048
     Dates: start: 20120413, end: 20120501
  12. TALION [Concomitant]
     Route: 048
     Dates: start: 20120222
  13. URSODIOL [Concomitant]
     Dosage: 900 MG, QD
     Route: 048
  14. VX-950 [Suspect]
     Indication: HEPATITIS C
     Dosage: 2250 MG, QD
     Route: 048
     Dates: start: 20120210, end: 20120217
  15. RIBAVIRIN [Concomitant]
     Dosage: 600 MG, UNK
     Route: 048
     Dates: start: 20120303, end: 20120309

REACTIONS (1)
  - RENAL DISORDER [None]
